FAERS Safety Report 15427913 (Version 1)
Quarter: 2018Q3

REPORT INFORMATION
  Report Type: Report from Study
  Country: GB (occurrence: GB)
  Receive Date: 20180926
  Receipt Date: 20180926
  Transmission Date: 20181010
  Serious: Yes (Hospitalization, Other)
  Sender: FDA-Public Use
  Company Number: GB-UCBSA-2018042249

PATIENT
  Sex: Male

DRUGS (1)
  1. CERTOLIZUMAB PEGOL [Suspect]
     Active Substance: CERTOLIZUMAB PEGOL
     Indication: RHEUMATOID ARTHRITIS
     Dosage: 200 MG, EV 3 WEEKS
     Route: 058
     Dates: start: 20120629

REACTIONS (5)
  - Lung disorder [Unknown]
  - Rheumatoid arthritis [Unknown]
  - Renal impairment [Unknown]
  - Decreased immune responsiveness [Unknown]
  - Inappropriate schedule of drug administration [Unknown]
